FAERS Safety Report 4780179-2 (Version None)
Quarter: 2005Q3

REPORT INFORMATION
  Report Type: 
  Country: None (occurrence: None)
  Receive Date: 20050914
  Receipt Date: 20050422
  Transmission Date: 20060218
  Serious: Yes (Hospitalization, Other)
  Sender: FDA-Public Use
  Company Number: 163-20785-05040494

PATIENT
  Age: 64 Year
  Sex: Male
  Weight: 122.4712 kg

DRUGS (17)
  1. THALOMID [Suspect]
     Indication: MULTIPLE MYELOMA
     Dosage: UNKNOWN, QD, ORAL
     Route: 048
     Dates: start: 20000324, end: 20000601
  2. COUMADIN [Suspect]
     Dosage: 1 MG, ORAL
     Route: 048
     Dates: start: 20000921, end: 20040301
  3. ZOMETA [Suspect]
     Dosage: 4 MG, MONTHLY, INTRAMUSCULAR
     Route: 030
     Dates: start: 20020606, end: 20031024
  4. ZOMETA [Suspect]
     Dosage: 4 MG, MONTHLY, INTRAMUSCULAR
     Route: 030
     Dates: start: 20031025, end: 20040301
  5. VINCRISTINE [Suspect]
     Indication: MULTIPLE MYELOMA
     Dosage: UNK
     Route: 065
     Dates: start: 20000325
  6. ADRIAMYCIN PFS [Suspect]
     Indication: MULTIPLE MYELOMA
     Dosage: UNKNOWN
     Route: 065
     Dates: start: 20000325
  7. DEXAMETHASONE [Suspect]
     Indication: MULTIPLE MYELOMA
     Dates: start: 20000325
  8. DEXAMETHASONE [Suspect]
     Indication: MULTIPLE MYELOMA
     Dates: start: 20000505
  9. CYCLOPHOSPHAMIDE [Suspect]
     Indication: MULTIPLE MYELOMA
     Dates: start: 20000525
  10. ETOPOSIDE [Suspect]
     Indication: MULTIPLE MYELOMA
     Dates: start: 20000505
  11. CISPLATIN [Suspect]
     Indication: MULTIPLE MYELOMA
     Dates: start: 20000505
  12. ACYCLOVIR [Concomitant]
  13. SYNTHROID [Concomitant]
  14. PERCOCET [Concomitant]
  15. ELAVIL [Concomitant]
  16. VITAMIN B12 [Concomitant]
  17. VITAMIN B COMPLEX (B-KOMPLEX ^LECIVA^) [Concomitant]

REACTIONS (6)
  - ABDOMINAL PAIN UPPER [None]
  - ANAEMIA [None]
  - DEEP VEIN THROMBOSIS [None]
  - GASTROOESOPHAGEAL REFLUX DISEASE [None]
  - NEUROPATHY PERIPHERAL [None]
  - THROMBOCYTOPENIA [None]
